FAERS Safety Report 15275705 (Version 1)
Quarter: 2018Q3

REPORT INFORMATION
  Report Type: Spontaneous
  Country: US (occurrence: US)
  Receive Date: 20180728
  Receipt Date: 20180728
  Transmission Date: 20181010
  Serious: Yes (Other)
  Sender: FDA-Public Use
  Company Number: None

PATIENT
  Age: 46 Year
  Sex: Female
  Weight: 96.75 kg

DRUGS (9)
  1. ATORVASTATIN [Concomitant]
     Active Substance: ATORVASTATIN
  2. SPIRONALACTONE [Concomitant]
     Active Substance: SPIRONOLACTONE
  3. COUMADIN [Concomitant]
     Active Substance: WARFARIN SODIUM
  4. DIGESTIVE ENZYMES [Concomitant]
     Active Substance: UNSPECIFIED INGREDIENT
  5. VALSARTAN. [Suspect]
     Active Substance: VALSARTAN
     Indication: ANGINA PECTORIS
     Route: 048
  6. PLAQUENIL [Concomitant]
     Active Substance: HYDROXYCHLOROQUINE SULFATE
  7. METROPOLOL [Concomitant]
     Active Substance: METOPROLOL
  8. ZINC. [Concomitant]
     Active Substance: ZINC
  9. ASPIRIN. [Concomitant]
     Active Substance: ASPIRIN

REACTIONS (2)
  - Pain in extremity [None]
  - Paraesthesia [None]

NARRATIVE: CASE EVENT DATE: 20170801
